FAERS Safety Report 5610849-5 (Version None)
Quarter: 2008Q1

REPORT INFORMATION
  Report Type: 
  Country: None (occurrence: None)
  Receive Date: 20080201
  Receipt Date: 20080122
  Transmission Date: 20080703
  Serious: Yes (Other)
  Sender: FDA-Public Use
  Company Number: GB-JNJFOC-20071002975

PATIENT
  Age: 58 Year
  Sex: Female

DRUGS (10)
  1. OFLOXACIN [Suspect]
     Indication: POSTOPERATIVE CARE
     Route: 065
  2. DEXAMETHASONE TAB [Suspect]
     Indication: POSTOPERATIVE CARE
     Route: 065
  3. OCUFEN [Suspect]
     Indication: PREOPERATIVE CARE
     Route: 065
  4. CYCLOPENTOLATE HCL [Suspect]
     Indication: PREOPERATIVE CARE
     Route: 065
  5. GLYCEROL 2.6% [Suspect]
     Indication: PREOPERATIVE CARE
     Route: 065
  6. HYALURONATE SODIUM [Suspect]
     Indication: PROPHYLAXIS
     Route: 065
  7. LIDOCAINE [Suspect]
     Indication: PROPHYLAXIS
     Route: 065
  8. PHENYLEPHRINE [Suspect]
     Indication: PREOPERATIVE CARE
     Route: 065
  9. POVIDONE IODINE [Suspect]
     Indication: PREOPERATIVE CARE
     Route: 065
  10. PROXYMETACAINE [Suspect]
     Indication: PERIOPERATIVE ANALGESIA
     Route: 065

REACTIONS (1)
  - TOXIC ANTERIOR SEGMENT SYNDROME [None]
